FAERS Safety Report 10310855 (Version 1)
Quarter: 2014Q3

REPORT INFORMATION
  Report Type: Spontaneous
  Country: ES (occurrence: None)
  Receive Date: 20140714
  Receipt Date: 20140714
  Transmission Date: 20150326
  Serious: Yes (Hospitalization)
  Sender: FDA-Public Use
  Company Number: 2014PL000111

PATIENT
  Age: 35 Year
  Sex: Male

DRUGS (1)
  1. AZATHIOPRINE. [Suspect]
     Active Substance: AZATHIOPRINE
     Indication: CROHN^S DISEASE

REACTIONS (11)
  - Blood alkaline phosphatase increased [None]
  - Cytomegalovirus infection [None]
  - Gamma-glutamyltransferase increased [None]
  - Serum ferritin increased [None]
  - Hepatosplenomegaly [None]
  - C-reactive protein increased [None]
  - Pancytopenia [None]
  - Blood triglycerides increased [None]
  - Malaise [None]
  - Histiocytosis haematophagic [None]
  - Pyrexia [None]
